FAERS Safety Report 5420896-4 (Version None)
Quarter: 2007Q3

REPORT INFORMATION
  Report Type: 
  Country: None (occurrence: None)
  Receive Date: 20070817
  Receipt Date: 20070810
  Transmission Date: 20080115
  Serious: Yes (Hospitalization)
  Sender: FDA-Public Use
  Company Number: 163-20785-07080577

PATIENT
  Age: 81 Year
  Sex: Female

DRUGS (1)
  1. THALOMID [Suspect]
     Indication: PLASMACYTOMA
     Dosage: 50 MG, 1 IN 1 D, ORAL
     Route: 048
     Dates: start: 20050211

REACTIONS (1)
  - OSTEOARTHRITIS [None]
